FAERS Safety Report 9084495 (Version 1)
Quarter: 2013Q1

REPORT INFORMATION
  Report Type: Report from Study
  Country: US (occurrence: US)
  Receive Date: 20130131
  Receipt Date: 20130131
  Transmission Date: 20140127
  Serious: No
  Sender: FDA-Public Use
  Company Number: US-ABBOTT-12P-163-0993983-00

PATIENT
  Sex: Female

DRUGS (2)
  1. HUMIRA [Suspect]
     Indication: PRODUCT USED FOR UNKNOWN INDICATION
     Dates: start: 201009
  2. METHOTREXATE [Concomitant]
     Indication: PRODUCT USED FOR UNKNOWN INDICATION

REACTIONS (7)
  - Gingival bleeding [Unknown]
  - Tooth erosion [Unknown]
  - Cough [Unknown]
  - Nasopharyngitis [Unknown]
  - Unevaluable event [Unknown]
  - Pyrexia [Unknown]
  - Increased upper airway secretion [Unknown]
